FAERS Safety Report 10732691 (Version 2)
Quarter: 2015Q1

REPORT INFORMATION
  Report Type: Spontaneous
  Country: JP (occurrence: JP)
  Receive Date: 20150123
  Receipt Date: 20150204
  Transmission Date: 20150721
  Serious: Yes (Hospitalization, Other)
  Sender: FDA-Public Use
  Company Number: JP-PFIZER INC-2015023583

PATIENT
  Age: 61 Year
  Sex: Male
  Weight: 64 kg

DRUGS (4)
  1. LEVOFOLINATE [Suspect]
     Active Substance: LEVOLEUCOVORIN CALCIUM
     Indication: PANCREATIC CARCINOMA
     Dosage: 250 MG/BODY (149.3 MG/M2)
     Route: 041
     Dates: start: 20140619, end: 20140619
  2. 5-FU [Concomitant]
     Active Substance: FLUOROURACIL
     Dosage: 2600 MG/BODY/D1-2 (1552.2 MG/M2/D1-2)
     Route: 041
     Dates: start: 20140619, end: 20140619
  3. ELPLAT [Suspect]
     Active Substance: OXALIPLATIN
     Indication: PANCREATIC CARCINOMA
     Dosage: 110 MG/BODY (65.7 MG/M2),
     Route: 041
     Dates: start: 20140619, end: 20140619
  4. CAMPTO [Suspect]
     Active Substance: IRINOTECAN
     Indication: PANCREATIC CARCINOMA
     Dosage: 240 MG/BODY (143.3 MG/M2)
     Route: 041
     Dates: start: 20140619, end: 20140619

REACTIONS (10)
  - Nausea [Unknown]
  - Hypercalcaemia [Unknown]
  - Haemoglobin decreased [Unknown]
  - Blood creatinine increased [Unknown]
  - Fatigue [Unknown]
  - Alanine aminotransferase increased [Unknown]
  - Decreased appetite [Unknown]
  - Vomiting [Unknown]
  - Aspartate aminotransferase increased [Unknown]
  - Stomatitis [Unknown]
